FAERS Safety Report 24313387 (Version 1)
Quarter: 2024Q3

REPORT INFORMATION
  Report Type: Spontaneous
  Country: US (occurrence: US)
  Receive Date: 20240912
  Receipt Date: 20240912
  Transmission Date: 20241017
  Serious: Yes (Life-Threatening)
  Sender: PFIZER
  Company Number: US-PFIZER INC-PV202400117304

PATIENT
  Sex: Female
  Weight: 3.5 kg

DRUGS (3)
  1. MEPIVACAINE HYDROCHLORIDE [Suspect]
     Active Substance: MEPIVACAINE HYDROCHLORIDE
     Indication: Nerve block
     Dosage: 10 ML; 110 MINUTES PRIOR TO DELIVERY
     Route: 064
  2. MEPIVACAINE HYDROCHLORIDE [Suspect]
     Active Substance: MEPIVACAINE HYDROCHLORIDE
     Dosage: 10 ML; 55 MINUTES PRIOR TO DELIVERY
     Route: 064
  3. LIDOCAINE HYDROCHLORIDE [Concomitant]
     Active Substance: LIDOCAINE HYDROCHLORIDE
     Dosage: UNK

REACTIONS (5)
  - Foetal exposure during delivery [Recovering/Resolving]
  - Ventricular tachycardia [Recovering/Resolving]
  - Seizure [Unknown]
  - Infantile apnoea [Recovering/Resolving]
  - Wound [Unknown]
